FAERS Safety Report 6197457-5 (Version None)
Quarter: 2009Q2

REPORT INFORMATION
  Report Type: 
  Country: None (occurrence: None)
  Receive Date: 20090521
  Receipt Date: 20090226
  Transmission Date: 20091009
  Serious: No
  Sender: FDA-Public Use
  Company Number: US-TEVA-187478USA

PATIENT
  Sex: Female

DRUGS (3)
  1. AZILECT [Suspect]
     Route: 048
     Dates: start: 20090101, end: 20090201
  2. AZILECT [Suspect]
     Dates: start: 20090201
  3. COUGH COLD MEDICINE (NOS) [Concomitant]

REACTIONS (1)
  - SWOLLEN TONGUE [None]
